FAERS Safety Report 17216736 (Version 1)
Quarter: 2019Q4

REPORT INFORMATION
  Report Type: Report from Study
  Country: US (occurrence: US)
  Receive Date: 20191230
  Receipt Date: 20191230
  Transmission Date: 20200122
  Serious: Yes (Death)
  Sender: FDA-Public Use
  Company Number: US-ROCHE-2468825

PATIENT
  Age: 95 Year
  Sex: Male

DRUGS (10)
  1. ALPRAZOLAM. [Concomitant]
     Active Substance: ALPRAZOLAM
  2. SIMVASTATIN. [Concomitant]
     Active Substance: SIMVASTATIN
  3. LUCENTIS [Suspect]
     Active Substance: RANIBIZUMAB
     Indication: MACULAR OEDEMA
  4. RANOLAZINE. [Concomitant]
     Active Substance: RANOLAZINE
  5. NITROSTAT [Concomitant]
     Active Substance: NITROGLYCERIN
  6. WARFARIN [Concomitant]
     Active Substance: WARFARIN
  7. LUCENTIS [Suspect]
     Active Substance: RANIBIZUMAB
     Indication: RETINAL VEIN OCCLUSION
     Dosage: LAST DOSE ON 22/OCT/2018
     Route: 065
     Dates: start: 20180416
  8. LANTUS [Concomitant]
     Active Substance: INSULIN GLARGINE
  9. NOVOLOG [Concomitant]
     Active Substance: INSULIN ASPART
  10. MIDODRINE [Concomitant]
     Active Substance: MIDODRINE

REACTIONS (1)
  - Death [Fatal]

NARRATIVE: CASE EVENT DATE: 20190214
